FAERS Safety Report 18336482 (Version 2)
Quarter: 2020Q4

REPORT INFORMATION
  Report Type: Other
  Country: DE (occurrence: DE)
  Receive Date: 20201001
  Receipt Date: 20201113
  Transmission Date: 20210113
  Serious: Yes (Death, Other)
  Sender: FDA-Public Use
  Company Number: DE-EMD SERONO-E2B_90080394

PATIENT
  Age: 26 Year
  Sex: Male

DRUGS (2)
  1. INSULIN GLARGINE [Suspect]
     Active Substance: INSULIN GLARGINE
     Indication: DIABETES MELLITUS
  2. METFORMIN [Suspect]
     Active Substance: METFORMIN HYDROCHLORIDE
     Indication: DIABETES MELLITUS

REACTIONS (4)
  - Gastrointestinal disorder [Unknown]
  - Drug ineffective [Not Recovered/Not Resolved]
  - Lymphoma [Fatal]
  - Therapy non-responder [Unknown]
